FAERS Safety Report 9044839 (Version 1)
Quarter: 2013Q1

REPORT INFORMATION
  Report Type: Report from Study
  Country: US (occurrence: US)
  Receive Date: 20130130
  Receipt Date: 20130130
  Transmission Date: 20140127
  Serious: No
  Sender: FDA-Public Use
  Company Number: US-ABBOTT-12P-163-0954132-00

PATIENT
  Age: 52 Year
  Sex: Female

DRUGS (9)
  1. HUMIRA 40 MG/0.8 ML PEN [Suspect]
     Indication: PSORIATIC ARTHROPATHY
     Route: 058
     Dates: start: 20120608, end: 20120622
  2. METHOTREXATE [Concomitant]
     Indication: PSORIATIC ARTHROPATHY
     Dosage: 2.5MG FIVE WEEKLY
     Dates: end: 2012
  3. METHOTREXATE [Concomitant]
     Dosage: 2.5MG SIX WEEKLY
     Dates: start: 20120726
  4. MELOXICAM [Concomitant]
     Indication: PSORIATIC ARTHROPATHY
     Dosage: 15MG DAILY
  5. FOLIC ACID [Concomitant]
     Indication: VITAMIN SUPPLEMENTATION
     Dosage: 1MG DAILY
  6. DILTIAZEM [Concomitant]
     Indication: BLOOD PRESSURE
     Dosage: 240MG DAILY
  7. DICYCLOMINE [Concomitant]
     Indication: BLOOD CHOLESTEROL
     Dosage: 10MG DAILY
  8. NEXIUM [Concomitant]
     Indication: GASTROOESOPHAGEAL REFLUX DISEASE
     Dosage: 40MG DAILY
  9. GEMFIBROZIL [Concomitant]
     Indication: GASTROINTESTINAL MOTILITY DISORDER
     Dosage: 600MG DAILY

REACTIONS (3)
  - Skin tightness [Recovered/Resolved]
  - Local swelling [Recovered/Resolved]
  - Local swelling [Recovered/Resolved]
